FAERS Safety Report 13629122 (Version 1)
Quarter: 2017Q2

REPORT INFORMATION
  Report Type: Spontaneous
  Country: US (occurrence: US)
  Receive Date: 20170608
  Receipt Date: 20170608
  Transmission Date: 20170830
  Serious: No
  Sender: FDA-Public Use
  Company Number: US-LEXICON PHARMACEUTICALS, INC-17-1606-00027

PATIENT
  Age: 58 Year
  Sex: Female

DRUGS (15)
  1. ESTROGEN [Concomitant]
     Active Substance: ESTROGENS
  2. VITAMIN B6 [Concomitant]
     Active Substance: PYRIDOXINE HYDROCHLORIDE
  3. L-5 HTP [Concomitant]
  4. VITAMIN C [Concomitant]
     Active Substance: ASCORBIC ACID
  5. TELOTRISTAT ETHYL [Suspect]
     Active Substance: TELOTRISTAT ETHYL
     Indication: CARCINOID TUMOUR
     Route: 048
     Dates: start: 20170320
  6. CARVEDILOL. [Concomitant]
     Active Substance: CARVEDILOL
  7. POTASSIUM [Concomitant]
     Active Substance: POTASSIUM
  8. VITAMIN D [Concomitant]
     Active Substance: CHOLECALCIFEROL
  9. ARMOUR THYROID [Concomitant]
     Active Substance: THYROID, PORCINE
  10. GABA [Concomitant]
     Active Substance: HOMEOPATHICS
  11. DIUREX [Concomitant]
     Active Substance: AMILORIDE HYDROCHLORIDE\HYDROCHLOROTHIAZIDE
  12. ALPHA LIPOIC ACID [Concomitant]
     Active Substance: .ALPHA.-LIPOIC ACID
  13. OMEPRAZOLE. [Concomitant]
     Active Substance: OMEPRAZOLE
  14. BIOTIN [Concomitant]
     Active Substance: BIOTIN
  15. SILLICA [Concomitant]

REACTIONS (1)
  - Headache [Unknown]

NARRATIVE: CASE EVENT DATE: 20170323
